FAERS Safety Report 9293883 (Version 1)
Quarter: 2013Q1

REPORT INFORMATION
  Report Type: Spontaneous
  Country: US (occurrence: None)
  Receive Date: 20121217
  Receipt Date: 20121217
  Transmission Date: 20140127
  Serious: No
  Sender: FDA-Public Use
  Company Number: 1000027933

PATIENT
  Age: 65 Year
  Sex: Female

DRUGS (10)
  1. NAMENDA [Suspect]
     Indication: CONFUSIONAL STATE
     Route: 048
     Dates: start: 200906, end: 2009
  2. NAMENDA [Suspect]
     Indication: CONFUSIONAL STATE
     Route: 048
     Dates: start: 2009, end: 20120123
  3. CYMBALTA (DULOXETINE HYDROCHLORIDE)(DULOXETINE HYDROCHLORIDE) [Concomitant]
  4. TOPROL(METOPROLOL SUCCINATE)(METOPROLOL SUCCINATE) [Concomitant]
  5. LISINOPRIL(LISINOPRIL)(LISINOPRIL) [Concomitant]
  6. XANAX(ALAPRAZOLAM)(ALAPRAZOLAM) [Concomitant]
  7. NEXIUM(ESOMEPRAZOLE)(ESOMEPRAZOLE) [Concomitant]
  8. XOLAIR(OMALIZUMAB)(OMALIZUMAB) [Concomitant]
  9. RECLAST (ZOLEDRONIC ACID)(ZOLEDRONIC ACID) [Concomitant]
  10. LOVASA (OMEGA-3-AACID ETHYL ESTERS)(OMEGA-3-ACID ETHYL ESTERS) [Concomitant]

REACTIONS (2)
  - Cataract [None]
  - Off label use [None]
